FAERS Safety Report 4822858-4 (Version None)
Quarter: 2005Q4

REPORT INFORMATION
  Report Type: 
  Country: None (occurrence: None)
  Receive Date: 20051104
  Receipt Date: 20051025
  Transmission Date: 20060501
  Serious: Yes (Hospitalization, Other)
  Sender: FDA-Public Use
  Company Number: 2005147732

PATIENT
  Age: 69 Year
  Sex: Male
  Weight: 65.7716 kg

DRUGS (8)
  1. LIPITOR [Suspect]
     Indication: BLOOD CHOLESTEROL ABNORMAL
     Dosage: 20 MG (20 MG, 1 IN D), ORAL
     Route: 048
     Dates: start: 20040201, end: 20050101
  2. COREG [Concomitant]
  3. ECOTRIN (ACETYLSALICYLIC ACID [Concomitant]
  4. XANAX [Concomitant]
  5. ISOSORBIDE [Concomitant]
  6. BUMETANIDE [Concomitant]
  7. WARFARIN SODIUM [Concomitant]
  8. ALTACE [Concomitant]

REACTIONS (5)
  - CARDIAC OPERATION [None]
  - GALLBLADDER DISORDER [None]
  - HEPATIC FAILURE [None]
  - LIVER DISORDER [None]
  - MALAISE [None]
